FAERS Safety Report 10285842 (Version 1)
Quarter: 2014Q3

REPORT INFORMATION
  Report Type: Spontaneous
  Country: US (occurrence: None)
  Receive Date: 20140703
  Receipt Date: 20140703
  Transmission Date: 20150326
  Serious: No
  Sender: FDA-Public Use
  Company Number: None

PATIENT
  Age: 72 Year
  Sex: Female
  Weight: 77.11 kg

DRUGS (14)
  1. LETEROZOLE [Concomitant]
  2. CALCIUM [Concomitant]
     Active Substance: CALCIUM
  3. EPIPEN [Concomitant]
     Active Substance: EPINEPHRINE
  4. OMEPRAZOLE. [Concomitant]
     Active Substance: OMEPRAZOLE
  5. OXYBUTYNIN CLER [Concomitant]
  6. COENZYME Q10 [Concomitant]
     Active Substance: UBIDECARENONE
  7. FISH OIL [Concomitant]
     Active Substance: FISH OIL
  8. SIMVASTATIN. [Concomitant]
     Active Substance: SIMVASTATIN
  9. VALSARTIN [Concomitant]
  10. CLINDAMYCIN HCL, COMMON BRAND(S) CLEOCIN [Suspect]
     Active Substance: CLINDAMYCIN HYDROCHLORIDE
     Indication: BACTERIAL INFECTION
     Dosage: 2 CAPSULES TO START THE ONE CAPSULE 4 TIMES A DAY UNTIL FINISHED EVERY 6 HOURS TAKEN BY MOUTH WTIH WATER 6AM. 12 PM, 6PM, 12 AM.
     Route: 048
     Dates: start: 20140421, end: 20140429
  11. BONIVA [Concomitant]
     Active Substance: IBANDRONATE SODIUM
  12. LEVOTHYROXINE [Concomitant]
     Active Substance: LEVOTHYROXINE
  13. ASPIRIN. [Concomitant]
     Active Substance: ASPIRIN
  14. VITAMIN D [Concomitant]
     Active Substance: CHOLECALCIFEROL

REACTIONS (9)
  - Rash erythematous [None]
  - Sunburn [None]
  - Rash pruritic [None]
  - Drug hypersensitivity [None]
  - Burning sensation [None]
  - Swelling [None]
  - Skin exfoliation [None]
  - Blister [None]
  - Dry skin [None]

NARRATIVE: CASE EVENT DATE: 20140430
